FAERS Safety Report 19165851 (Version 1)
Quarter: 2021Q2

REPORT INFORMATION
  Report Type: Spontaneous
  Country: DE (occurrence: DE)
  Receive Date: 20210421
  Receipt Date: 20210421
  Transmission Date: 20210717
  Serious: Yes (Death, Other)
  Sender: FDA-Public Use
  Company Number: DE-PFIZER INC-2021406123

PATIENT
  Age: 67 Year
  Sex: Male

DRUGS (5)
  1. PIPERACILLIN/TAZOBACTAM [Suspect]
     Active Substance: PIPERACILLIN SODIUM\TAZOBACTAM SODIUM
     Indication: BACTERAEMIA
     Dosage: UNK
     Route: 042
  2. DALBAVANCIN. [Suspect]
     Active Substance: DALBAVANCIN
     Dosage: 500 MG, WEEKLY
     Dates: start: 201905
  3. VANCOMYCIN [Suspect]
     Active Substance: VANCOMYCIN
     Indication: BACTERAEMIA
     Dosage: UNK
  4. DAPTOMYCIN. [Suspect]
     Active Substance: DAPTOMYCIN
     Indication: BACTERAEMIA
     Dosage: 10 MG/KG
  5. DALBAVANCIN. [Suspect]
     Active Substance: DALBAVANCIN
     Indication: BACTERAEMIA
     Dosage: 1000 MG

REACTIONS (2)
  - Cerebrovascular accident [Fatal]
  - Rash [Unknown]
